FAERS Safety Report 8831751 (Version 1)
Quarter: 2012Q4

REPORT INFORMATION
  Report Type: 
  Country: US (occurrence: US)
  Receive Date: 20121009
  Receipt Date: 20121009
  Transmission Date: 20130627
  Serious: No
  Sender: FDA-Public Use
  Company Number: US-B.I. PHARMACEUTICALS,INC./RIDGEFIELD-2012-BP-23617BP

PATIENT
  Age: 71 Year
  Sex: Male
  Weight: 86 kg

DRUGS (6)
  1. SPIRIVA [Suspect]
     Indication: EMPHYSEMA
     Dosage: 18 mcg
     Route: 055
     Dates: start: 201109
  2. METOPROLOL [Concomitant]
     Indication: CARDIAC DISORDER
     Dosage: 12.5 mg
     Route: 048
     Dates: start: 201109
  3. PRAVASTATIN [Concomitant]
     Dosage: 40 mg
     Route: 048
     Dates: start: 201109
  4. PREDNISONE [Concomitant]
     Indication: DYSPNOEA
     Dosage: 5 mg
     Route: 048
     Dates: start: 201109
  5. SINGULAIR [Concomitant]
     Indication: DYSPNOEA
     Dosage: 10 mg
     Route: 048
     Dates: start: 201109
  6. TERAZOSIN [Concomitant]
     Indication: PROSTATOMEGALY
     Dosage: 2 mg
     Route: 048
     Dates: start: 201109

REACTIONS (2)
  - Drug ineffective [Unknown]
  - Product quality issue [Unknown]
